FAERS Safety Report 5026910-2 (Version None)
Quarter: 2006Q2

REPORT INFORMATION
  Report Type: 
  Country: None (occurrence: None)
  Receive Date: 20060501
  Receipt Date: 20060210
  Transmission Date: 20061013
  Serious: No
  Sender: FDA-Public Use
  Company Number: 200610804BWH

PATIENT
  Age: 62 Year

DRUGS (10)
  1. NEXAVAR [Suspect]
     Indication: CLEAR CELL CARCINOMA OF THE KIDNEY
  2. NEXAVAR [Suspect]
     Indication: METASTASES TO CENTRAL NERVOUS SYSTEM
  3. NEXAVAR [Suspect]
     Indication: METASTASIS
  4. ASPIRIN [Concomitant]
  5. COUMADIN [Concomitant]
  6. KEPPRA [Concomitant]
  7. NITROSTAT [Concomitant]
  8. PROTONIX [Concomitant]
  9. VYTORIN [Concomitant]
  10. ZYRTEC [Concomitant]

REACTIONS (2)
  - HEADACHE [None]
  - SUNBURN [None]
